FAERS Safety Report 21227721 (Version 1)
Quarter: 2022Q3

REPORT INFORMATION
  Report Type: Spontaneous
  Country: JP (occurrence: JP)
  Receive Date: 20220818
  Receipt Date: 20220818
  Transmission Date: 20221027
  Serious: No
  Sender: FDA-Public Use
  Company Number: JP-GSKNCCC-Case-01554188_AE-61230

PATIENT

DRUGS (1)
  1. SOTROVIMAB [Suspect]
     Active Substance: SOTROVIMAB
     Indication: COVID-19
     Dosage: 500 MG/ 50 ML/ 30 MIN
     Dates: start: 20220814, end: 20220814

REACTIONS (3)
  - Urticaria [Recovered/Resolved]
  - Pruritus [Unknown]
  - Erythema [Recovered/Resolved]
